FAERS Safety Report 17159642 (Version 2)
Quarter: 2020Q1

REPORT INFORMATION
  Report Type: Spontaneous
  Country: FR (occurrence: FR)
  Receive Date: 20191216
  Receipt Date: 20200113
  Transmission Date: 20200409
  Serious: Yes (Other)
  Sender: FDA-Public Use
  Company Number: FR-PFIZER INC-2019540730

PATIENT
  Age: 82 Year
  Sex: Male
  Weight: 62 kg

DRUGS (5)
  1. ZOPICLONE [Concomitant]
     Active Substance: ZOPICLONE
  2. ADENURIC [Concomitant]
     Active Substance: FEBUXOSTAT
  3. LASILIX [FUROSEMIDE] [Concomitant]
     Active Substance: FUROSEMIDE
  4. VYNDAQEL [Suspect]
     Active Substance: TAFAMIDIS MEGLUMINE
     Dosage: 20 MG, DAILY
     Dates: end: 20191210
  5. PREVISCAN [FLUINDIONE] [Concomitant]
     Active Substance: FLUINDIONE

REACTIONS (1)
  - Cardiac failure [Unknown]
